FAERS Safety Report 5839849-7 (Version None)
Quarter: 2008Q3

REPORT INFORMATION
  Report Type: 
  Country: None (occurrence: None)
  Receive Date: 20080807
  Receipt Date: 20080731
  Transmission Date: 20090109
  Serious: Yes (Hospitalization)
  Sender: FDA-Public Use
  Company Number: 2008SP013016

PATIENT
  Age: 66 Year
  Sex: Male
  Weight: 81.4 kg

DRUGS (3)
  1. TEMODAR [Suspect]
     Indication: GLIOBLASTOMA MULTIFORME
     Dosage: 150 MG; QD; PO
     Route: 048
     Dates: start: 20080513, end: 20080618
  2. NEURONTIN [Concomitant]
  3. DECADRON [Concomitant]

REACTIONS (6)
  - ATELECTASIS [None]
  - HYPERCOAGULATION [None]
  - LUNG CONSOLIDATION [None]
  - PLATELET COUNT DECREASED [None]
  - PULMONARY EMBOLISM [None]
  - PYREXIA [None]
